FAERS Safety Report 7867976-1 (Version None)
Quarter: 2011Q4

REPORT INFORMATION
  Report Type: 
  Country: None (occurrence: None)
  Receive Date: 20111028
  Receipt Date: 20100405
  Transmission Date: 20120403
  Serious: No
  Sender: FDA-Public Use
  Company Number: US-BAYER-201018817NA

PATIENT
  Age: 18 Year
  Sex: Female

DRUGS (3)
  1. ADVAIR DISKUS 100/50 [Concomitant]
  2. AVELOX [Suspect]
     Indication: PNEUMONIA
     Route: 042
  3. SINGULAIR [Concomitant]

REACTIONS (1)
  - INFUSION SITE ERYTHEMA [None]
